FAERS Safety Report 5151631-5 (Version None)
Quarter: 2006Q4

REPORT INFORMATION
  Report Type: 
  Country: None (occurrence: None)
  Receive Date: 20061115
  Receipt Date: 20060628
  Transmission Date: 20070319
  Serious: Yes (Other)
  Sender: FDA-Public Use
  Company Number: US-BRISTOL-MYERS SQUIBB COMPANY-13426622

PATIENT
  Age: 42 Year
  Sex: Female
  Weight: 78 kg

DRUGS (1)
  1. SUSTIVA [Suspect]
     Indication: HIV INFECTION
     Dates: start: 20060201

REACTIONS (1)
  - VIRAL MUTATION IDENTIFIED [None]
